FAERS Safety Report 9542483 (Version 1)
Quarter: 2013Q3

REPORT INFORMATION
  Report Type: Spontaneous
  Country: RU (occurrence: RU)
  Receive Date: 20130923
  Receipt Date: 20130923
  Transmission Date: 20140515
  Serious: Yes (Hospitalization, Other)
  Sender: FDA-Public Use
  Company Number: RU-BAYER-2013-114059

PATIENT
  Age: 27 Year
  Sex: Female

DRUGS (6)
  1. YARINA [Suspect]
     Route: 048
  2. SYMBICORT TU [Concomitant]
  3. METFORMIN [Concomitant]
  4. AZITHROMYCIN [Concomitant]
  5. BERODUAL [Concomitant]
  6. HEPARIN [Concomitant]

REACTIONS (3)
  - Convulsion [Recovered/Resolved]
  - Oedema peripheral [Recovered/Resolved]
  - Haemoptysis [Recovered/Resolved]
